FAERS Safety Report 4326290-1 (Version None)
Quarter: 2004Q1

REPORT INFORMATION
  Report Type: 
  Country: None (occurrence: None)
  Receive Date: 20040324
  Receipt Date: 20040305
  Transmission Date: 20041129
  Serious: Yes (Disabling, Congenital Anomaly)
  Sender: FDA-Public Use
  Company Number: US_0403101361

PATIENT
  Age: 1 Day
  Sex: Female

DRUGS (2)
  1. ILETIN-BEEF/PORK LENTE INSULIN (INSULIN, ANIMAL) [Suspect]
     Dates: start: 19810101, end: 19821202
  2. ILETIN-BEEF/PORK REGULAR INSULIN(INSULIN, ANIMAL) [Suspect]
     Dates: start: 19810101, end: 19821202

REACTIONS (10)
  - BLINDNESS CONGENITAL [None]
  - BLINDNESS UNILATERAL [None]
  - CLEFT PALATE [None]
  - CONGENITAL ANOMALY [None]
  - DEAFNESS UNILATERAL [None]
  - DRUG EXPOSURE DURING PREGNANCY [None]
  - EAR INFECTION [None]
  - LIMB REDUCTION DEFECT [None]
  - SCOLIOSIS [None]
  - SPINAL FUSION ACQUIRED [None]
